FAERS Safety Report 22653915 (Version 1)
Quarter: 2023Q2

REPORT INFORMATION
  Report Type: Spontaneous
  Country: US (occurrence: US)
  Receive Date: 20230629
  Receipt Date: 20230629
  Transmission Date: 20230722
  Serious: No
  Sender: FDA-Public Use
  Company Number: US-SA-SAC20230627000760

PATIENT
  Age: 58 Year
  Sex: Female

DRUGS (19)
  1. DUPIXENT [Suspect]
     Active Substance: DUPILUMAB
     Indication: Dermatitis atopic
     Dosage: 300 MG, QOW
     Route: 058
     Dates: start: 20221213
  2. DUPIXENT [Suspect]
     Active Substance: DUPILUMAB
     Indication: Asthma
  3. TRIAMCINOLONE [Concomitant]
     Active Substance: TRIAMCINOLONE
  4. ACCOLATE [Concomitant]
     Active Substance: ZAFIRLUKAST
  5. AZELASTINE [Concomitant]
     Active Substance: AZELASTINE
  6. CLINDAMYCIN [Concomitant]
     Active Substance: CLINDAMYCIN
  7. EPINEPHRINE [Concomitant]
     Active Substance: EPINEPHRINE
  8. IPRATROPIUM [Concomitant]
     Active Substance: IPRATROPIUM
  9. MACROBID [Concomitant]
     Active Substance: NITROFURANTOIN\NITROFURANTOIN MONOHYDRATE
  10. MUCINEX [Concomitant]
     Active Substance: GUAIFENESIN
  11. NOVOLOG [Concomitant]
     Active Substance: INSULIN ASPART
  12. OTEZLA [Concomitant]
     Active Substance: APREMILAST
  13. PENNSAID [Concomitant]
     Active Substance: DICLOFENAC SODIUM
  14. PROAIR HFA [Concomitant]
     Active Substance: ALBUTEROL SULFATE
  15. SUDAFED PE SINUS CONGESTION [Concomitant]
     Active Substance: PHENYLEPHRINE HYDROCHLORIDE
  16. SUMATRIPTAN [Concomitant]
     Active Substance: SUMATRIPTAN
  17. VITAMIN B12 [Concomitant]
     Active Substance: CYANOCOBALAMIN
  18. VITAMIN D NOS [Concomitant]
     Active Substance: VITAMIN D NOS
  19. ZYRTEC [Concomitant]
     Active Substance: CETIRIZINE HYDROCHLORIDE

REACTIONS (3)
  - Bronchitis [Recovering/Resolving]
  - Infection [Not Recovered/Not Resolved]
  - Impaired quality of life [Not Recovered/Not Resolved]

NARRATIVE: CASE EVENT DATE: 20230605
